FAERS Safety Report 8079108-8 (Version None)
Quarter: 2012Q1

REPORT INFORMATION
  Report Type: 
  Country: None (occurrence: None)
  Receive Date: 20120128
  Receipt Date: 20110817
  Transmission Date: 20120608
  Serious: No
  Sender: FDA-Public Use
  Company Number: US-ABBOTT-11P-163-0847698-00

PATIENT
  Sex: Male
  Weight: 99.88 kg

DRUGS (4)
  1. VITAMIN TAB [Concomitant]
     Indication: SUPPLEMENTATION THERAPY
  2. HUMIRA [Suspect]
     Indication: PSORIASIS
     Dosage: AS NEEDED; EVERY 4 WEEKS AT PRESENT
  3. PHILLIPS COLON HEALTH [Concomitant]
     Indication: IMMUNE SYSTEM DISORDER
  4. DTP VACCINE [Concomitant]
     Indication: PRODUCT USED FOR UNKNOWN INDICATION

REACTIONS (11)
  - FEELING ABNORMAL [None]
  - PAIN IN JAW [None]
  - VISION BLURRED [None]
  - HEADACHE [None]
  - DIZZINESS [None]
  - SKIN FISSURES [None]
  - DYSPNOEA [None]
  - WEIGHT INCREASED [None]
  - PSORIASIS [None]
  - ALOPECIA [None]
  - CHEST DISCOMFORT [None]
